FAERS Safety Report 8028082-9 (Version None)
Quarter: 2012Q1

REPORT INFORMATION
  Report Type: 
  Country: None (occurrence: None)
  Receive Date: 20120106
  Receipt Date: 20120103
  Transmission Date: 20120608
  Serious: Yes (Hospitalization)
  Sender: FDA-Public Use
  Company Number: ZA-ABBOTT-11P-143-0885834-00

PATIENT
  Sex: Female

DRUGS (1)
  1. HUMIRA [Suspect]
     Indication: RHEUMATOID ARTHRITIS
     Route: 058
     Dates: start: 20111201

REACTIONS (14)
  - MOBILITY DECREASED [None]
  - INFLUENZA LIKE ILLNESS [None]
  - MALAISE [None]
  - ASTHENIA [None]
  - PAIN [None]
  - DECREASED APPETITE [None]
  - HEPATOMEGALY [None]
  - KIDNEY ENLARGEMENT [None]
  - CARDIAC FAILURE [None]
  - EMOTIONAL DISTRESS [None]
  - SINUSITIS [None]
  - COUGH [None]
  - PYREXIA [None]
  - HEADACHE [None]
